FAERS Safety Report 17844975 (Version 1)
Quarter: 2020Q2

REPORT INFORMATION
  Report Type: Spontaneous
  Country: CN (occurrence: CN)
  Receive Date: 20200601
  Receipt Date: 20200601
  Transmission Date: 20200714
  Serious: Yes (Other)
  Sender: FDA-Public Use
  Company Number: CN-ROCHE-2610900

PATIENT
  Age: 76 Year
  Sex: Male

DRUGS (5)
  1. PEMETREXED. [Concomitant]
     Active Substance: PEMETREXED
     Indication: LUNG NEOPLASM MALIGNANT
     Dosage: ON DAY1 FOR 4 COURSES
     Route: 065
     Dates: start: 20180616
  2. CARBOPLATIN. [Concomitant]
     Active Substance: CARBOPLATIN
     Indication: LUNG NEOPLASM MALIGNANT
     Dosage: 200MG ON DAY1, 250MG ON DAY2 FOR 4 COURSES
     Route: 065
     Dates: start: 20180616
  3. AVASTIN [Suspect]
     Active Substance: BEVACIZUMAB
     Indication: LUNG NEOPLASM MALIGNANT
     Dosage: ON DAY1 FOR 4 COURSES
     Route: 065
     Dates: start: 20180616
  4. PEMETREXED. [Concomitant]
     Active Substance: PEMETREXED
     Dosage: ON DAY1 FOR 2 COURSES
     Route: 065
     Dates: start: 20181001
  5. DOCETAXEL. [Concomitant]
     Active Substance: DOCETAXEL
     Indication: LUNG NEOPLASM MALIGNANT
     Dosage: ON DAY1 FOR 1 COURSE
     Route: 065
     Dates: start: 20190120

REACTIONS (1)
  - Bone marrow failure [Unknown]
